FAERS Safety Report 19930694 (Version 1)
Quarter: 2021Q4

REPORT INFORMATION
  Report Type: Spontaneous
  Country: US (occurrence: US)
  Receive Date: 20211007
  Receipt Date: 20211007
  Transmission Date: 20220304
  Serious: No
  Sender: FDA-Public Use
  Company Number: US-BAYER-2021A224990

PATIENT
  Sex: Female
  Weight: 88.2 kg

DRUGS (5)
  1. ADEMPAS [Suspect]
     Active Substance: RIOCIGUAT
  2. ADEMPAS [Suspect]
     Active Substance: RIOCIGUAT
     Dosage: 2 MG, TID
  3. ADEMPAS [Concomitant]
     Active Substance: RIOCIGUAT
  4. MACITENTAN [Concomitant]
     Active Substance: MACITENTAN
     Dosage: 10 MG, QD
     Route: 048
  5. APIXABAN [Concomitant]
     Active Substance: APIXABAN

REACTIONS (3)
  - Nausea [None]
  - Dizziness postural [None]
  - Dyspepsia [None]
